FAERS Safety Report 12481900 (Version 5)
Quarter: 2016Q4

REPORT INFORMATION
  Report Type: Report from Study
  Country: US (occurrence: US)
  Receive Date: 20160620
  Receipt Date: 20161130
  Transmission Date: 20170207
  Serious: Yes (Hospitalization)
  Sender: FDA-Public Use
  Company Number: US-EXELIXIS-CABO-16006441

PATIENT
  Sex: Female

DRUGS (5)
  1. COMETRIQ [Suspect]
     Active Substance: CABOZANTINIB S-MALATE
     Dosage: 100 MG, QD
     Route: 048
     Dates: start: 201608
  2. LEVOTHYROXINE. [Concomitant]
     Active Substance: LEVOTHYROXINE
  3. ZOLOFT [Concomitant]
     Active Substance: SERTRALINE HYDROCHLORIDE
  4. CALCIUM [Concomitant]
     Active Substance: CALCIUM
  5. COMETRIQ [Suspect]
     Active Substance: CABOZANTINIB S-MALATE
     Indication: THYROID CANCER
     Dosage: 140 MG, QD
     Route: 048
     Dates: start: 20160418, end: 201606

REACTIONS (11)
  - Wound infection staphylococcal [Recovered/Resolved]
  - Eating disorder [Not Recovered/Not Resolved]
  - Oropharyngeal pain [Unknown]
  - Loss of consciousness [Unknown]
  - Oral mucosal blistering [Not Recovered/Not Resolved]
  - Dehydration [Unknown]
  - Fluid intake reduced [Unknown]
  - Stomatitis [Unknown]
  - Alopecia [Unknown]
  - Vomiting [Unknown]
  - Fatigue [Unknown]
